FAERS Safety Report 9511782 (Version 1)
Quarter: 2013Q3

REPORT INFORMATION
  Report Type: Spontaneous
  Country: US (occurrence: US)
  Receive Date: 20130910
  Receipt Date: 20130910
  Transmission Date: 20140515
  Serious: No
  Sender: FDA-Public Use
  Company Number: US-BAYER-2013-108856

PATIENT
  Age: 73 Year
  Sex: Female
  Weight: 66 kg

DRUGS (1)
  1. ALEVE CAPLET [Suspect]
     Indication: PAIN
     Dosage: 2 DF, USED ONLY ONE TIME
     Route: 048
     Dates: start: 20130906, end: 20130906

REACTIONS (1)
  - Drug ineffective [None]
